FAERS Safety Report 12079001 (Version 2)
Quarter: 2016Q1

REPORT INFORMATION
  Report Type: Spontaneous
  Country: US (occurrence: US)
  Receive Date: 20160216
  Receipt Date: 20160316
  Transmission Date: 20160526
  Serious: No
  Sender: FDA-Public Use
  Company Number: US-PFIZER INC-2016036327

PATIENT
  Age: 70 Year
  Sex: Male
  Weight: 81.65 kg

DRUGS (5)
  1. ADVIL ALLERGY AND CONGESTION RELIEF [Suspect]
     Active Substance: CHLORPHENIRAMINE MALEATE\IBUPROFEN\PHENYLEPHRINE HYDROCHLORIDE
     Indication: HEADACHE
  2. ADVIL ALLERGY AND CONGESTION RELIEF [Suspect]
     Active Substance: CHLORPHENIRAMINE MALEATE\IBUPROFEN\PHENYLEPHRINE HYDROCHLORIDE
     Indication: PARANASAL SINUS DISCOMFORT
  3. ADVIL ALLERGY AND CONGESTION RELIEF [Suspect]
     Active Substance: CHLORPHENIRAMINE MALEATE\IBUPROFEN\PHENYLEPHRINE HYDROCHLORIDE
     Indication: COUGH
  4. ADVIL ALLERGY AND CONGESTION RELIEF [Suspect]
     Active Substance: CHLORPHENIRAMINE MALEATE\IBUPROFEN\PHENYLEPHRINE HYDROCHLORIDE
     Indication: NASOPHARYNGITIS
     Dosage: 1 TABLET
     Dates: start: 20160118, end: 20160118
  5. ADVIL ALLERGY AND CONGESTION RELIEF [Suspect]
     Active Substance: CHLORPHENIRAMINE MALEATE\IBUPROFEN\PHENYLEPHRINE HYDROCHLORIDE
     Indication: RHINORRHOEA

REACTIONS (3)
  - Product label issue [Recovered/Resolved]
  - Dizziness [Not Recovered/Not Resolved]
  - Somnolence [Recovered/Resolved]

NARRATIVE: CASE EVENT DATE: 20160120
